FAERS Safety Report 13523892 (Version 1)
Quarter: 2017Q2

REPORT INFORMATION
  Report Type: Spontaneous
  Country: US (occurrence: US)
  Receive Date: 20170508
  Receipt Date: 20170508
  Transmission Date: 20170830
  Serious: No
  Sender: FDA-Public Use
  Company Number: US-VIFOR (INTERNATIONAL) INC.-VIT-2017-01988

PATIENT
  Sex: Female

DRUGS (8)
  1. PROCARDIA XL [Concomitant]
     Active Substance: NIFEDIPINE
     Dates: start: 20150313
  2. VITAMIN D [Concomitant]
     Active Substance: CHOLECALCIFEROL
     Dates: start: 20150313
  3. LASIX [Concomitant]
     Active Substance: FUROSEMIDE
     Dates: start: 20150313
  4. IRON [Concomitant]
     Active Substance: IRON
     Dates: start: 20150313
  5. COQ10 [Concomitant]
     Active Substance: UBIDECARENONE
     Dates: start: 20150313
  6. VELTASSA [Suspect]
     Active Substance: PATIROMER
     Indication: HYPERKALAEMIA
     Route: 048
     Dates: start: 201701
  7. LOSARTAN POT [Concomitant]
     Active Substance: LOSARTAN POTASSIUM
     Dates: start: 20150313
  8. CALCIUM [Concomitant]
     Active Substance: CALCIUM
     Dates: start: 20150313

REACTIONS (1)
  - Constipation [Unknown]

NARRATIVE: CASE EVENT DATE: 2017
